FAERS Safety Report 6152241-3 (Version None)
Quarter: 2009Q2

REPORT INFORMATION
  Report Type: 
  Country: None (occurrence: None)
  Receive Date: 20090410
  Receipt Date: 20090402
  Transmission Date: 20091009
  Serious: Yes (Hospitalization)
  Sender: FDA-Public Use
  Company Number: DE-ABBOTT-04P-062-0258984-00

PATIENT
  Sex: Female
  Weight: 58 kg

DRUGS (6)
  1. HUMIRA [Suspect]
     Indication: RHEUMATOID ARTHRITIS
     Dosage: 40 MILLIGRAM
     Route: 058
     Dates: start: 20040127
  2. ARELIX ACE [Concomitant]
     Indication: HYPERTENSION
  3. ATOSIL [Concomitant]
     Indication: DEPRESSION
     Dates: end: 20060101
  4. AMITRIPTYLINE HCL [Concomitant]
     Indication: DEPRESSION
  5. PANTOZOL [Concomitant]
     Indication: PROPHYLAXIS AGAINST GASTROINTESTINAL ULCER
  6. HUMIRA [Concomitant]
     Indication: RHEUMATOID ARTHRITIS
     Route: 058

REACTIONS (1)
  - DEAFNESS NEUROSENSORY [None]
